FAERS Safety Report 16763439 (Version 3)
Quarter: 2019Q4

REPORT INFORMATION
  Report Type: Spontaneous
  Country: JP (occurrence: JP)
  Receive Date: 20190902
  Receipt Date: 20191209
  Transmission Date: 20200122
  Serious: Yes (Hospitalization, Other)
  Sender: FDA-Public Use
  Company Number: JP-BRISTOL-MYERS SQUIBB COMPANY-BMS-2019-079726

PATIENT
  Age: 74 Year
  Sex: Female
  Weight: 50.5 kg

DRUGS (4)
  1. OPDIVO [Suspect]
     Active Substance: NIVOLUMAB
     Indication: PRODUCT USED FOR UNKNOWN INDICATION
     Dosage: UNK
     Route: 041
     Dates: start: 20190226
  2. YERVOY [Suspect]
     Active Substance: IPILIMUMAB
     Indication: METASTATIC RENAL CELL CARCINOMA
     Dosage: 1 MG/KG
     Route: 041
     Dates: start: 20181128
  3. VOTRIENT [Suspect]
     Active Substance: PAZOPANIB HYDROCHLORIDE
     Indication: METASTATIC RENAL CELL CARCINOMA
     Dosage: DOSE UNSPECIFIED
     Route: 065
     Dates: start: 20190624
  4. OPDIVO [Suspect]
     Active Substance: NIVOLUMAB
     Indication: METASTATIC RENAL CELL CARCINOMA
     Dosage: 240 MILLIGRAM
     Route: 041
     Dates: start: 20181128, end: 20190205

REACTIONS (14)
  - Gastrointestinal haemorrhage [Recovering/Resolving]
  - Platelet count decreased [Recovering/Resolving]
  - Anaemia [Recovering/Resolving]
  - Jejunal ulcer [Recovering/Resolving]
  - Renal impairment [Recovering/Resolving]
  - Dehydration [Recovering/Resolving]
  - Melaena [Recovering/Resolving]
  - Enterocolitis [Recovering/Resolving]
  - Diarrhoea [Recovering/Resolving]
  - Drug-induced liver injury [Recovering/Resolving]
  - Constipation [Recovering/Resolving]
  - Hypotension [Recovering/Resolving]
  - Duodenal ulcer [Recovering/Resolving]
  - Hepatic function abnormal [Recovering/Resolving]

NARRATIVE: CASE EVENT DATE: 20190709
